FAERS Safety Report 4355224-9 (Version None)
Quarter: 2004Q2

REPORT INFORMATION
  Report Type: 
  Country: None (occurrence: None)
  Receive Date: 20040504
  Receipt Date: 20040421
  Transmission Date: 20050107
  Serious: Yes (Hospitalization, Other)
  Sender: FDA-Public Use
  Company Number: 2004014114

PATIENT
  Sex: Female
  Weight: 74.8435 kg

DRUGS (14)
  1. GEODON [Suspect]
     Indication: AFFECTIVE DISORDER
     Dosage: ORAL
     Route: 048
     Dates: start: 20020301
  2. GEODON [Suspect]
     Indication: BIPOLAR DISORDER
     Dosage: ORAL
     Route: 048
     Dates: start: 20020301
  3. GEODON [Suspect]
     Indication: PARANOIA
     Dosage: ORAL
     Route: 048
     Dates: start: 20020301
  4. GEODON [Suspect]
     Indication: PSYCHOTIC DISORDER
     Dosage: ORAL
     Route: 048
     Dates: start: 20020301
  5. LITHIUM CARBONATE [Suspect]
     Indication: ILL-DEFINED DISORDER
  6. PERPHENAZINE [Suspect]
     Indication: AFFECTIVE DISORDER
     Dates: start: 20020101
  7. BENZATROPINE MESILATE (BENZATROPINE MESILATE) [Concomitant]
  8. DIAZEPAM [Concomitant]
  9. ZOLPIDEM TARTRATE [Concomitant]
  10. SIMVASTATIN [Concomitant]
  11. LEVOTHYROXINE SODIUM [Concomitant]
  12. FOLIC ACID [Concomitant]
  13. GABAPENTIN [Concomitant]
  14. ALL OTHER THERAPEUTIC PRODUCTS (ALL OTHER THERAPEUTIC PRODUCTS) [Concomitant]

REACTIONS (21)
  - AGITATION [None]
  - ALOPECIA [None]
  - ANGER [None]
  - ANOREXIA [None]
  - ANXIETY [None]
  - DIZZINESS [None]
  - DRUG EFFECT DECREASED [None]
  - DRUG HYPERSENSITIVITY [None]
  - FEELING ABNORMAL [None]
  - HYPERTENSION [None]
  - INSOMNIA [None]
  - IRRITABILITY [None]
  - JOINT SWELLING [None]
  - OEDEMA PERIPHERAL [None]
  - PAIN [None]
  - PARAESTHESIA [None]
  - PARANOIA [None]
  - RASH [None]
  - RASH ERYTHEMATOUS [None]
  - WEIGHT DECREASED [None]
  - WEIGHT INCREASED [None]
